FAERS Safety Report 8508647 (Version 1)
Quarter: 2012Q4

REPORT INFORMATION
  Report Type: 
  Country: DE (occurrence: DE)
  Receive Date: 20120905
  Receipt Date: 20120905
  Transmission Date: 20130627
  Serious: Yes (Hospitalization)
  Sender: FDA-Public Use
  Company Number: DE-GILEAD-2012-0052229

PATIENT
  Age: 24 Year
  Sex: Female

DRUGS (11)
  1. CAYSTON [Suspect]
     Indication: CYSTIC FIBROSIS
     Dosage: 75 mg, Cyclical
     Route: 055
  2. KREON                              /00014701/ [Concomitant]
  3. URSOFALK [Concomitant]
     Dosage: 1000 mg, UNK
  4. AZITHROMYCIN [Concomitant]
     Dosage: 1500 mg, Q1Wk
  5. ACC                                /00082801/ [Concomitant]
     Dosage: 600 mg, UNK
  6. VITAMIN A W/VITAMIN D/VITAMIN E/VITAMIN K/ [Concomitant]
  7. SELEN [Concomitant]
  8. PULMOZYME [Concomitant]
     Route: 055
  9. SALBUTAMOL [Concomitant]
     Route: 055
  10. MUCOCLEAR [Concomitant]
     Route: 055
  11. FLUTICASONE PROPIONATE W/SALMETEROL XINAFOATE [Concomitant]
     Route: 055

REACTIONS (8)
  - Hypersensitivity [Recovered/Resolved]
  - Urticaria [Recovered/Resolved]
  - Pruritus [Recovered/Resolved]
  - Dyspnoea [Recovered/Resolved]
  - Chest discomfort [Recovered/Resolved]
  - Throat tightness [Recovered/Resolved]
  - Lip swelling [Recovered/Resolved]
  - Body temperature increased [Recovered/Resolved]
